FAERS Safety Report 14068020 (Version 3)
Quarter: 2018Q1

REPORT INFORMATION
  Report Type: Spontaneous
  Country: US (occurrence: US)
  Receive Date: 20171010
  Receipt Date: 20180327
  Transmission Date: 20180508
  Serious: Yes (Other)
  Sender: FDA-Public Use
  Company Number: US-SUN PHARMACEUTICAL INDUSTRIES LTD-2017US-151836

PATIENT
  Age: 62 Year
  Sex: Female

DRUGS (2)
  1. CARBOPLATIN. [Suspect]
     Active Substance: CARBOPLATIN
     Indication: BREAST CANCER STAGE II
     Dosage: 2 DOSES; ADJUSTED FOR AUC 6 MG/ML/MIN
     Route: 065
  2. TAXOL [Suspect]
     Active Substance: PACLITAXEL
     Indication: BREAST CANCER STAGE II
     Dosage: 6 CYCLES OF WEEKLY PACLITAXEL 80 MG/M^2
     Route: 065

REACTIONS (3)
  - Colitis ischaemic [Recovered/Resolved]
  - Cytopenia [Unknown]
  - Neuropathy peripheral [Unknown]
